FAERS Safety Report 7473035-2 (Version None)
Quarter: 2011Q2

REPORT INFORMATION
  Report Type: 
  Country: None (occurrence: None)
  Receive Date: 20110511
  Receipt Date: 20110427
  Transmission Date: 20111010
  Serious: Yes (Other)
  Sender: FDA-Public Use
  Company Number: US-ROCHE-747608

PATIENT
  Sex: Male
  Weight: 93 kg

DRUGS (2)
  1. ACCUTANE [Suspect]
     Route: 065
     Dates: start: 19850101, end: 19851201
  2. ACCUTANE [Suspect]
     Route: 065
     Dates: start: 19820601, end: 19831201

REACTIONS (10)
  - RECTAL FISSURE [None]
  - GASTROINTESTINAL INJURY [None]
  - IRRITABLE BOWEL SYNDROME [None]
  - CROHN'S DISEASE [None]
  - OSTEOPOROSIS [None]
  - COLITIS ULCERATIVE [None]
  - DIVERTICULUM [None]
  - RECTAL ULCER [None]
  - INTESTINAL STENOSIS [None]
  - INFLAMMATORY BOWEL DISEASE [None]
